FAERS Safety Report 10070759 (Version 2)
Quarter: 2014Q2

REPORT INFORMATION
  Report Type: Spontaneous
  Country: FR (occurrence: FR)
  Receive Date: 20140410
  Receipt Date: 20140508
  Transmission Date: 20141212
  Serious: Yes (Hospitalization)
  Sender: FDA-Public Use
  Company Number: FR-BAXTER-2014BAX016319

PATIENT
  Age: 71 Year
  Sex: Female

DRUGS (10)
  1. ENDOXAN 50 MG, COMPRIM? ENROB? [Suspect]
     Indication: PRODUCT USED FOR UNKNOWN INDICATION
     Route: 048
     Dates: start: 20140206, end: 20140222
  2. BROMAZEPAM [Concomitant]
     Indication: DRUG THERAPY
     Route: 048
  3. PAROXETINE [Concomitant]
     Indication: DRUG THERAPY
     Route: 048
  4. LAMALINE                           /00764901/ [Concomitant]
     Indication: DRUG THERAPY
     Route: 048
  5. MOVICOL [Concomitant]
     Indication: DRUG THERAPY
     Route: 065
  6. ZOPICLONE [Concomitant]
     Indication: DRUG THERAPY
     Route: 048
  7. UVEDOSE [Concomitant]
     Indication: DRUG THERAPY
     Dosage: 1 AMPULE
     Route: 048
     Dates: start: 201402, end: 201402
  8. RABEPRAZOL [Concomitant]
     Indication: DRUG THERAPY
     Route: 048
  9. DOMPERIDONE [Concomitant]
     Indication: DRUG THERAPY
     Route: 048
  10. GELOX [Concomitant]
     Indication: DRUG THERAPY
     Route: 048

REACTIONS (4)
  - Renal failure acute [Recovering/Resolving]
  - Vertigo [Unknown]
  - Diarrhoea [Unknown]
  - Neck pain [Unknown]
